FAERS Safety Report 16214678 (Version 6)
Quarter: 2020Q4

REPORT INFORMATION
  Report Type: Spontaneous
  Country: US (occurrence: US)
  Receive Date: 20190418
  Receipt Date: 20201123
  Transmission Date: 20210113
  Serious: Yes (Other)
  Sender: FDA-Public Use
  Company Number: US-GILEAD-2019-0402841

PATIENT
  Age: 48 Year
  Sex: Male

DRUGS (36)
  1. VIREAD [Suspect]
     Active Substance: TENOFOVIR DISOPROXIL FUMARATE
     Dosage: UNK
     Route: 048
     Dates: start: 2004, end: 2006
  2. TRUVADA [Suspect]
     Active Substance: EMTRICITABINE\TENOFOVIR DISOPROXIL FUMARATE
     Dosage: UNK
     Route: 048
     Dates: start: 2014, end: 2018
  3. FUZEON [Concomitant]
     Active Substance: ENFUVIRTIDE
  4. LATUDA [Concomitant]
     Active Substance: LURASIDONE HYDROCHLORIDE
  5. GENVOYA [Concomitant]
     Active Substance: COBICISTAT\ELVITEGRAVIR\EMTRICITABINE\TENOFOVIR ALAFENAMIDE FUMARATE
  6. APTIVUS [Concomitant]
     Active Substance: TIPRANAVIR
  7. PROZAC [Concomitant]
     Active Substance: FLUOXETINE HYDROCHLORIDE
  8. TRUVADA [Suspect]
     Active Substance: EMTRICITABINE\TENOFOVIR DISOPROXIL FUMARATE
     Indication: HIV INFECTION
     Dosage: UNK
     Route: 048
     Dates: start: 200708, end: 20181207
  9. NASONEX [Concomitant]
     Active Substance: MOMETASONE FUROATE
  10. ATORVASTATIN [Concomitant]
     Active Substance: ATORVASTATIN
  11. LANTUS [Concomitant]
     Active Substance: INSULIN GLARGINE
  12. LISINOPRIL. [Concomitant]
     Active Substance: LISINOPRIL
  13. GLIPIZIDE AND METFORMIN HCL [Concomitant]
     Active Substance: GLIPIZIDE\METFORMIN HYDROCHLORIDE
  14. INTELENCE [Concomitant]
     Active Substance: ETRAVIRINE
  15. ALBUTEROL HFA [Concomitant]
     Active Substance: ALBUTEROL SULFATE
  16. SYMTUZA [Concomitant]
     Active Substance: COBICISTAT\DARUNAVIR\EMTRICITABINE\TENOFOVIR ALAFENAMIDE
  17. AZITHROMYCIN ANHYDROUS. [Concomitant]
     Active Substance: AZITHROMYCIN ANHYDROUS
  18. AMLODIPINE [Concomitant]
     Active Substance: AMLODIPINE BESYLATE
  19. PREZISTA [Concomitant]
     Active Substance: DARUNAVIR ETHANOLATE
  20. SELZENTRY [Concomitant]
     Active Substance: MARAVIROC
  21. LEVEMIR [Concomitant]
     Active Substance: INSULIN DETEMIR
  22. ISENTRESS [Concomitant]
     Active Substance: RALTEGRAVIR POTASSIUM
  23. DESYREL [Concomitant]
     Active Substance: TRAZODONE HYDROCHLORIDE
  24. DOXYCYCLINE. [Concomitant]
     Active Substance: DOXYCYCLINE
  25. VIREAD [Suspect]
     Active Substance: TENOFOVIR DISOPROXIL FUMARATE
     Indication: HIV INFECTION
     Dosage: UNK
     Route: 048
     Dates: start: 200409, end: 200708
  26. NOVOLOG [Concomitant]
     Active Substance: INSULIN ASPART
  27. LOPID [Concomitant]
     Active Substance: GEMFIBROZIL
  28. CRESTOR [Concomitant]
     Active Substance: ROSUVASTATIN CALCIUM
  29. DESCOVY [Concomitant]
     Active Substance: EMTRICITABINE\TENOFOVIR ALAFENAMIDE FUMARATE
  30. BIKTARVY [Concomitant]
     Active Substance: BICTEGRAVIR SODIUM\EMTRICITABINE\TENOFOVIR ALAFENAMIDE FUMARATE
  31. CLONIDINE. [Concomitant]
     Active Substance: CLONIDINE
  32. HYDROXYZINE [Concomitant]
     Active Substance: HYDROXYZINE HYDROCHLORIDE
  33. ASPIRIN (E.C.) [Concomitant]
     Active Substance: ASPIRIN
  34. CLONAZEPAM. [Concomitant]
     Active Substance: CLONAZEPAM
  35. METFORMIN [Concomitant]
     Active Substance: METFORMIN HYDROCHLORIDE
  36. VIAGRA [Concomitant]
     Active Substance: SILDENAFIL CITRATE

REACTIONS (12)
  - Tooth loss [Not Recovered/Not Resolved]
  - Bone loss [Unknown]
  - Multiple fractures [Unknown]
  - Bone density decreased [Not Recovered/Not Resolved]
  - Emotional distress [Unknown]
  - Chronic kidney disease [Not Recovered/Not Resolved]
  - Renal failure [Recovered/Resolved]
  - Economic problem [Unknown]
  - Anxiety [Unknown]
  - Osteonecrosis [Unknown]
  - Pain [Unknown]
  - Anhedonia [Unknown]

NARRATIVE: CASE EVENT DATE: 2006
